FAERS Safety Report 9849530 (Version 2)
Quarter: 2014Q3

REPORT INFORMATION
  Report Type: Spontaneous
  Country: US (occurrence: None)
  Receive Date: 20140124
  Receipt Date: 20140804
  Transmission Date: 20150326
  Serious: Yes (Hospitalization, Other)
  Sender: FDA-Public Use
  Company Number: 2014US000286

PATIENT
  Age: 66 Year
  Sex: Male

DRUGS (1)
  1. GLASSIA [Suspect]
     Active Substance: .ALPHA.1-PROTEINASE INHIBITOR HUMAN
     Indication: PRODUCT USED FOR UNKNOWN INDICATION
     Dosage: WEEKLY, INTRAVENOUS
     Route: 042

REACTIONS (8)
  - Thrombosis [None]
  - Cholecystitis infective [None]
  - Atrioventricular block [None]
  - Gallbladder disorder [None]
  - Weight increased [None]
  - Pneumonia [None]
  - Pulmonary embolism [None]
  - Weight decreased [None]

NARRATIVE: CASE EVENT DATE: 20131103
